FAERS Safety Report 8297576-3 (Version None)
Quarter: 2012Q2

REPORT INFORMATION
  Report Type: 
  Country: None (occurrence: None)
  Receive Date: 20120419
  Receipt Date: 20120410
  Transmission Date: 20120825
  Serious: Yes (Hospitalization)
  Sender: FDA-Public Use
  Company Number: DE-JNJFOC-20120404730

PATIENT
  Age: 37 Year
  Sex: Male
  Weight: 102 kg

DRUGS (2)
  1. GOLIMUMAB [Suspect]
     Indication: PSORIASIS
     Route: 058
     Dates: start: 20120309
  2. VALDOXAN (AGOMELATINE) [Concomitant]
     Indication: DEPRESSION

REACTIONS (4)
  - OFF LABEL USE [None]
  - BODY TEMPERATURE INCREASED [None]
  - ERYSIPELAS [None]
  - CHILLS [None]
